FAERS Safety Report 7071478-2 (Version None)
Quarter: 2010Q4

REPORT INFORMATION
  Report Type: 
  Country: None (occurrence: None)
  Receive Date: 20101029
  Receipt Date: 20100322
  Transmission Date: 20110411
  Serious: No
  Sender: FDA-Public Use
  Company Number: A0806582A

PATIENT
  Age: 17 Year
  Sex: Male
  Weight: 78.6 kg

DRUGS (1)
  1. ADVAIR DISKUS 100/50 [Suspect]
     Indication: ASTHMA
     Route: 055
     Dates: start: 20090601, end: 20090904

REACTIONS (2)
  - LIP SWELLING [None]
  - OEDEMA MOUTH [None]
